FAERS Safety Report 9186213 (Version 6)
Quarter: 2013Q4

REPORT INFORMATION
  Report Type: Spontaneous
  Country: US (occurrence: None)
  Receive Date: 20130321
  Receipt Date: 20131231
  Transmission Date: 20140711
  Serious: Yes (Other)
  Sender: FDA-Public Use
  Company Number: AUR-APL-2013-02420

PATIENT
  Age: 70 Year
  Sex: Female
  Weight: 73.02 kg

DRUGS (9)
  1. CEFDINIR [Suspect]
     Indication: BRONCHITIS
     Dates: start: 2010
  2. CEFDINIR [Suspect]
     Indication: INFECTION
     Dates: start: 2010
  3. CEFDINIR [Suspect]
     Dates: start: 2010
  4. LYRICA [Suspect]
     Indication: NEURALGIA
     Dosage: 600 MG (150 MG, 4 IN 1 D)
     Route: 048
     Dates: start: 200710
  5. LYRICA [Suspect]
     Indication: NERVE COMPRESSION
     Dosage: 600 MG (150 MG, 4 IN 1 D)
     Route: 048
     Dates: start: 200710
  6. PROVIGIL [Suspect]
     Indication: PRODUCT USED FOR UNKNOWN INDICATION
     Dosage: 400 MG (200 MG, 2 IN 1 D)
  7. ALBUTEROL (SALBUTAMOL) [Concomitant]
  8. DIAZEPAM (DIAZEPAM) [Concomitant]
  9. THYROID (THYROID) [Concomitant]

REACTIONS (18)
  - Drug hypersensitivity [None]
  - Stress [None]
  - Fatigue [None]
  - Coordination abnormal [None]
  - Fall [None]
  - Dyspnoea [None]
  - Cough [None]
  - Foreign body [None]
  - Anxiety [None]
  - Nervousness [None]
  - Anger [None]
  - Emotional disorder [None]
  - Burning sensation [None]
  - Insomnia [None]
  - Back pain [None]
  - Bronchitis [None]
  - Anxiety [None]
  - Nasopharyngitis [None]
